FAERS Safety Report 5397254-4 (Version None)
Quarter: 2007Q3

REPORT INFORMATION
  Report Type: 
  Country: None (occurrence: None)
  Receive Date: 20070723
  Receipt Date: 20070716
  Transmission Date: 20080115
  Serious: Yes (Life-Threatening, Other)
  Sender: FDA-Public Use
  Company Number: 2007VX001772

PATIENT
  Sex: Male

DRUGS (1)
  1. PERMAX [Suspect]
     Indication: PARKINSON'S DISEASE
     Dosage: PO
     Route: 048

REACTIONS (6)
  - DISSEMINATED INTRAVASCULAR COAGULATION [None]
  - INTERSTITIAL LUNG DISEASE [None]
  - PLEURAL EFFUSION [None]
  - PLEURISY [None]
  - PULMONARY ALVEOLAR HAEMORRHAGE [None]
  - SYSTEMIC LUPUS ERYTHEMATOSUS [None]
